FAERS Safety Report 5229681-X (Version None)
Quarter: 2007Q1

REPORT INFORMATION
  Report Type: 
  Country: None (occurrence: None)
  Receive Date: 20070201
  Receipt Date: 20070115
  Transmission Date: 20070707
  Serious: Yes (Other)
  Sender: FDA-Public Use
  Company Number: 430002E07USA

PATIENT
  Sex: Male

DRUGS (1)
  1. NOVANTRONE [Suspect]
     Dates: start: 20030121, end: 20030505

REACTIONS (1)
  - ACUTE PROMYELOCYTIC LEUKAEMIA [None]
